FAERS Safety Report 7860247-9 (Version None)
Quarter: 2011Q4

REPORT INFORMATION
  Report Type: 
  Country: None (occurrence: None)
  Receive Date: 20111026
  Receipt Date: 20111012
  Transmission Date: 20120403
  Serious: Yes (Other)
  Sender: FDA-Public Use
  Company Number: 2011P1009417

PATIENT
  Age: 65 Year
  Sex: Female
  Weight: 55.3388 kg

DRUGS (11)
  1. FENTANYL [Suspect]
     Indication: PAIN
     Dosage: 1 PATCH;Q3D;TDER
     Route: 062
     Dates: start: 20110101
  2. FENTANYL [Suspect]
     Indication: PAIN
     Dosage: 1 PATCH;Q3D;TDER
     Route: 062
     Dates: start: 20030101, end: 20110801
  3. LYRICA [Concomitant]
  4. PAROXETINE HCL [Concomitant]
  5. NEURONTIN [Suspect]
     Dosage: 1 PILL;X1
     Dates: start: 20100901, end: 20100901
  6. SENNA-F [Concomitant]
  7. LEVOTHYROXINE SODIUM [Concomitant]
  8. FENTANYL [Suspect]
     Dosage: 1 PATCH;Q3D;TDER
     Route: 062
     Dates: start: 20110801, end: 20110101
  9. SINEMET [Concomitant]
  10. ERYTHROMYCIN [Concomitant]
  11. OMEPRAZOLE [Concomitant]

REACTIONS (4)
  - URINARY INCONTINENCE [None]
  - PRURITUS [None]
  - LOSS OF CONSCIOUSNESS [None]
  - FAECAL INCONTINENCE [None]
